FAERS Safety Report 18838626 (Version 1)
Quarter: 2021Q1

REPORT INFORMATION
  Report Type: Spontaneous
  Country: US (occurrence: US)
  Receive Date: 20210203
  Receipt Date: 20210203
  Transmission Date: 20210419
  Serious: No
  Sender: FDA-Public Use
  Company Number: US-ALLERGAN-2037219US

PATIENT
  Sex: Female

DRUGS (6)
  1. BOTOX COSMETIC [Suspect]
     Active Substance: ONABOTULINUMTOXINA
     Indication: SKIN WRINKLING
     Dosage: 17 UNITS, SINGLE
     Dates: start: 20200831, end: 20200831
  2. BOTOX COSMETIC [Suspect]
     Active Substance: ONABOTULINUMTOXINA
     Indication: SKIN WRINKLING
     Dosage: 6.2 UNITS, SINGLE
     Dates: start: 20200831, end: 20200831
  3. BOTOX COSMETIC [Suspect]
     Active Substance: ONABOTULINUMTOXINA
     Dosage: 10 UNITS, SINGLE
     Dates: start: 20200831, end: 20200831
  4. BOTOX COSMETIC [Suspect]
     Active Substance: ONABOTULINUMTOXINA
     Dosage: 6.2 UNITS, SINGLE
     Dates: start: 20200831, end: 20200831
  5. BOTOX COSMETIC [Suspect]
     Active Substance: ONABOTULINUMTOXINA
     Indication: SKIN WRINKLING
     Dosage: 17 UNITS, SINGLE
     Dates: start: 20200831, end: 20200831
  6. BOTOX COSMETIC [Suspect]
     Active Substance: ONABOTULINUMTOXINA
     Dosage: 10 UNITS, SINGLE
     Dates: start: 20200831, end: 20200831

REACTIONS (2)
  - Drug ineffective [Unknown]
  - Product preparation issue [Unknown]
